FAERS Safety Report 8493899-3 (Version None)
Quarter: 2012Q3

REPORT INFORMATION
  Report Type: 
  Country: None (occurrence: None)
  Receive Date: 20120708
  Receipt Date: 20120703
  Transmission Date: 20120928
  Serious: Yes (Hospitalization, Other)
  Sender: FDA-Public Use
  Company Number: PT-BAYER-2012-065994

PATIENT
  Age: 22 Year
  Sex: Female

DRUGS (2)
  1. IBUPROFEN [Suspect]
     Indication: HEADACHE
     Dosage: 1 DF, ONCE
  2. ASPIRIN [Suspect]

REACTIONS (5)
  - INTRACARDIAC THROMBUS [None]
  - ANGIOEDEMA [None]
  - KOUNIS SYNDROME [None]
  - CARDIAC ANEURYSM [None]
  - MYOCARDIAL INFARCTION [None]
